FAERS Safety Report 5696012-0 (Version None)
Quarter: 2008Q2

REPORT INFORMATION
  Report Type: 
  Country: None (occurrence: None)
  Receive Date: 20080407
  Receipt Date: 20080403
  Transmission Date: 20081010
  Serious: Yes (Other)
  Sender: FDA-Public Use
  Company Number: US-MERCK-0803USA04719

PATIENT
  Age: 5 Year
  Sex: Male

DRUGS (4)
  1. SINGULAIR [Suspect]
     Indication: ASTHMA
     Route: 048
     Dates: start: 20050825
  2. SINGULAIR [Suspect]
     Route: 048
     Dates: start: 20031024, end: 20050824
  3. ALBUTEROL [Concomitant]
     Route: 065
  4. VITAMINS (UNSPECIFIED) [Concomitant]
     Route: 065

REACTIONS (5)
  - AGGRESSION [None]
  - AGITATION [None]
  - EMOTIONAL DISORDER [None]
  - MOOD SWINGS [None]
  - SUICIDAL IDEATION [None]
